FAERS Safety Report 17801643 (Version 2)
Quarter: 2020Q2

REPORT INFORMATION
  Report Type: Spontaneous
  Country: US (occurrence: US)
  Receive Date: 20200519
  Receipt Date: 20200626
  Transmission Date: 20200714
  Serious: No
  Sender: FDA-Public Use
  Company Number: US-GLAXOSMITHKLINE-US2020AMR078624

PATIENT
  Sex: Female

DRUGS (2)
  1. NUCALA [Suspect]
     Active Substance: MEPOLIZUMAB
     Indication: ASTHMA
     Dosage: UNK
     Route: 065
     Dates: start: 202003
  2. NUCALA [Suspect]
     Active Substance: MEPOLIZUMAB
     Dosage: UNK

REACTIONS (4)
  - Cough [Unknown]
  - Sputum increased [Unknown]
  - Drug ineffective [Unknown]
  - Lung disorder [Unknown]
